FAERS Safety Report 21753168 (Version 1)
Quarter: 2022Q4

REPORT INFORMATION
  Report Type: Spontaneous
  Country: US (occurrence: None)
  Receive Date: 20221219
  Receipt Date: 20221219
  Transmission Date: 20230113
  Serious: No
  Sender: FDA-Public Use
  Company Number: None

PATIENT
  Age: 73 Year
  Sex: Male
  Weight: 71.71 kg

DRUGS (9)
  1. ABIRATERONE [Suspect]
     Active Substance: ABIRATERONE
     Indication: Prostate cancer
     Dosage: FREQUENCY : DAILY;?
     Route: 048
  2. ATORVASTATIN [Concomitant]
     Active Substance: ATORVASTATIN
  3. DENEPEZIL [Concomitant]
  4. GABAPENTIN [Concomitant]
  5. CLUCOSAMINE-CHONDROITIN [Concomitant]
  6. LANSOPRAZOLE [Concomitant]
     Active Substance: LANSOPRAZOLE
  7. MULTIVITAMIN FOR MEN [Concomitant]
  8. PREBAGEN [Concomitant]
  9. MINERALS [Concomitant]
     Active Substance: MINERALS

REACTIONS (1)
  - Disease progression [None]
